FAERS Safety Report 12486414 (Version 4)
Quarter: 2016Q3

REPORT INFORMATION
  Report Type: Spontaneous
  Country: US (occurrence: US)
  Receive Date: 20160621
  Receipt Date: 20160902
  Transmission Date: 20161109
  Serious: Yes (Other)
  Sender: FDA-Public Use
  Company Number: US-PFIZER INC-2016308701

PATIENT
  Age: 54 Year
  Sex: Male

DRUGS (2)
  1. BOSULIF [Suspect]
     Active Substance: BOSUTINIB MONOHYDRATE
     Dosage: 500 MG, DAILY (1 QD)
     Route: 048
     Dates: start: 20160615
  2. BOSULIF [Suspect]
     Active Substance: BOSUTINIB MONOHYDRATE
     Indication: CHRONIC MYELOID LEUKAEMIA
     Dosage: 500 MG, DAILY (100 MG 5 TAB, 5QD)
     Route: 048
     Dates: start: 20160615

REACTIONS (5)
  - Dizziness [Recovering/Resolving]
  - Lip swelling [Unknown]
  - Chapped lips [Unknown]
  - Herpes simplex [Recovering/Resolving]
  - Lip pain [Unknown]

NARRATIVE: CASE EVENT DATE: 20160624
